FAERS Safety Report 16902559 (Version 1)
Quarter: 2019Q4

REPORT INFORMATION
  Report Type: Report from Study
  Country: EC (occurrence: EC)
  Receive Date: 20191010
  Receipt Date: 20191010
  Transmission Date: 20200122
  Serious: Yes (Life-Threatening)
  Sender: FDA-Public Use
  Company Number: EC-ROCHE-2400059

PATIENT
  Sex: Female

DRUGS (2)
  1. BONVIVA [Suspect]
     Active Substance: IBANDRONATE SODIUM
     Indication: OSTEOPOROSIS
     Route: 065
  2. CALCIUM [Concomitant]
     Active Substance: CALCIUM

REACTIONS (8)
  - Ill-defined disorder [Unknown]
  - Chest pain [Unknown]
  - Memory impairment [Unknown]
  - Movement disorder [Unknown]
  - Back pain [Unknown]
  - Feeling abnormal [Unknown]
  - Neck pain [Unknown]
  - Swelling [Unknown]
